FAERS Safety Report 5093175-5 (Version None)
Quarter: 2006Q3

REPORT INFORMATION
  Report Type: 
  Country: None (occurrence: None)
  Receive Date: 20060728
  Receipt Date: 20060629
  Transmission Date: 20061208
  Serious: No
  Sender: FDA-Public Use
  Company Number: 254539

PATIENT
  Age: 64 Year
  Sex: Male

DRUGS (10)
  1. LEVEMIR FLEXPEN(INSULIN DETEMIR) SOLUTION FOR INJECTION, .0024MOL/L [Suspect]
     Indication: INSULIN-REQUIRING TYPE II DIABETES MELLITUS
     Dosage: SUBCUTANEOUS
     Route: 058
     Dates: start: 20060515, end: 20060601
  2. CRESTOR /01588601/ (ROSUVASTATIN) [Concomitant]
  3. AMARYL [Concomitant]
  4. GLUCOPHAGE /00082701/ (METFORMIN) [Concomitant]
  5. AVANDIA [Concomitant]
  6. AVAPRO [Concomitant]
  7. ALTACE [Concomitant]
  8. ASPIRIN [Concomitant]
  9. CORGARD [Concomitant]
  10. VERAPAMIL [Concomitant]

REACTIONS (1)
  - RASH MACULAR [None]
